FAERS Safety Report 14225561 (Version 1)
Quarter: 2017Q4

REPORT INFORMATION
  Report Type: Spontaneous
  Country: US (occurrence: US)
  Receive Date: 20171127
  Receipt Date: 20171127
  Transmission Date: 20180321
  Serious: No
  Sender: FDA-Public Use
  Company Number: US-TEVA-754281USA

PATIENT
  Sex: Male

DRUGS (2)
  1. HYDROCORTISONE. [Suspect]
     Active Substance: HYDROCORTISONE
     Route: 065
  2. TRIPLE ANTIBIOTIC WITH PRAMOXINE [Suspect]
     Active Substance: BACITRACIN ZINC\NEOMYCIN SULFATE\POLYMYXIN B SULFATE\PRAMOXINE HYDROCHLORIDE
     Dosage: 10000 UNITS / 3.5 MG / 500 UNITS / 10 MG / G
     Route: 065

REACTIONS (4)
  - Product label issue [Unknown]
  - Product physical issue [Unknown]
  - Product physical consistency issue [None]
  - Drug ineffective [Unknown]
